FAERS Safety Report 8605650-4 (Version None)
Quarter: 2012Q3

REPORT INFORMATION
  Report Type: 
  Country: None (occurrence: None)
  Receive Date: 20120820
  Receipt Date: 20120514
  Transmission Date: 20120928
  Serious: Yes (Other)
  Sender: FDA-Public Use
  Company Number: US-TEVA-2010005247

PATIENT
  Sex: Female
  Weight: 94.432 kg

DRUGS (6)
  1. NUVIGIL [Suspect]
     Indication: POOR QUALITY SLEEP
     Dosage: 250 MILLIGRAM DAILY;
     Route: 048
     Dates: start: 20100501
  2. PSYLLIUM [Concomitant]
     Indication: ABNORMAL FAECES
     Dosage: 2.6 GRAM DAILY;
  3. ACETAMINOPHEN [Concomitant]
     Indication: HEADACHE
  4. BUPROPION HCL [Concomitant]
     Indication: DEPRESSION
     Dosage: 300 MILLIGRAM DAILY;
     Dates: start: 20030101
  5. OB COMPLETE [Concomitant]
     Indication: VITAMIN SUPPLEMENTATION
     Dates: start: 20100927
  6. PRISTIQ [Concomitant]
     Indication: DEPRESSION
     Dosage: 50 MILLIGRAM DAILY;
     Dates: start: 20080101

REACTIONS (3)
  - ABORTION MISSED [None]
  - HEADACHE [None]
  - MATERNAL EXPOSURE DURING PREGNANCY [None]
